FAERS Safety Report 12374314 (Version 2)
Quarter: 2016Q2

REPORT INFORMATION
  Report Type: Report from Study
  Country: CA (occurrence: CA)
  Receive Date: 20160517
  Receipt Date: 20160527
  Transmission Date: 20160815
  Serious: Yes (Other)
  Sender: FDA-Public Use
  Company Number: CA-AMGEN-CANSL2015099465

PATIENT
  Age: 65 Year
  Sex: Female

DRUGS (1)
  1. ENBREL [Suspect]
     Active Substance: ETANERCEPT
     Indication: RHEUMATOID ARTHRITIS
     Dosage: 25 MG, UNK
     Route: 065
     Dates: start: 20130319

REACTIONS (7)
  - Musculoskeletal pain [Unknown]
  - Osteonecrosis [Unknown]
  - Infection [Unknown]
  - Pain [Unknown]
  - Neck pain [Unknown]
  - Bone pain [Unknown]
  - Thyroid disorder [Unknown]
